FAERS Safety Report 6227376-7 (Version None)
Quarter: 2009Q2

REPORT INFORMATION
  Report Type: 
  Country: None (occurrence: None)
  Receive Date: 20090610
  Receipt Date: 20090603
  Transmission Date: 20091009
  Serious: Yes (Other)
  Sender: FDA-Public Use
  Company Number: 2009S1008415

PATIENT
  Age: 38 Year
  Sex: Male

DRUGS (2)
  1. CIPROFLOXACIN [Suspect]
     Indication: PARATYPHOID FEVER
     Dosage: 500 MG; TWICE A DAY
  2. ENBREL [Suspect]
     Indication: RHEUMATOID ARTHRITIS
     Dosage: 25 MG, 2 WEEK, SUBCUTANEOUS
     Route: 058
     Dates: start: 20031001, end: 20090428

REACTIONS (2)
  - DRUG INEFFECTIVE [None]
  - PARATYPHOID FEVER [None]
